FAERS Safety Report 4323751-6 (Version None)
Quarter: 2004Q1

REPORT INFORMATION
  Report Type: 
  Country: None (occurrence: None)
  Receive Date: 20040323
  Receipt Date: 20040309
  Transmission Date: 20041129
  Serious: Yes (Death)
  Sender: FDA-Public Use
  Company Number: JP-JNJFOC-20040302325

PATIENT
  Age: 56 Year
  Sex: Female

DRUGS (7)
  1. FENTANYL [Suspect]
     Indication: CANCER PAIN
     Dosage: 2.5 MG, 1 IN 3 DAY, TRANSDERMAL
     Route: 062
     Dates: start: 20031219, end: 20040127
  2. PROTEINS, AMINO ACID AND PREPARATIONS (ALL OTHER THERAPEUTIC PRODUCTS) [Concomitant]
  3. FAMOTIDINE [Concomitant]
  4. MIXED VITAMIN PREPARATIONS (VITAMIN PREPARATION COMPOUND) [Concomitant]
  5. MINERAL PREPARATIONS (MINERALS NOS) [Concomitant]
  6. DICLOFENAC SODIUM [Concomitant]
  7. FLUNITRAZEPAM (FLUNITRAZEPAM) [Concomitant]

REACTIONS (2)
  - MALIGNANT NEOPLASM PROGRESSION [None]
  - OVARIAN CANCER [None]
